FAERS Safety Report 5472550-0 (Version None)
Quarter: 2007Q3

REPORT INFORMATION
  Report Type: 
  Country: None (occurrence: None)
  Receive Date: 20070926
  Receipt Date: 20070917
  Transmission Date: 20080115
  Serious: Yes (Disabling, Other)
  Sender: FDA-Public Use
  Company Number: 17468

PATIENT
  Age: 24 Year
  Sex: Female

DRUGS (10)
  1. METHOTREXATE [Suspect]
     Indication: B-CELL TYPE ACUTE LEUKAEMIA
  2. METHOTREXATE [Suspect]
     Indication: B-CELL TYPE ACUTE LEUKAEMIA
     Dosage: 12 MG IT
  3. CYTARABINE [Suspect]
     Indication: B-CELL TYPE ACUTE LEUKAEMIA
  4. CYCLOPHOSPHAMIDE [Concomitant]
  5. ADRIAMYCIN PFS [Concomitant]
  6. DEXAMETHASONE 0.5MG TAB [Concomitant]
  7. OFLOXACIN [Concomitant]
  8. PIPERACILLIN AND TAZOBACTAM [Concomitant]
  9. AMIKACIN [Concomitant]
  10. CRANIOSPINAL IRRADIATION [Concomitant]

REACTIONS (6)
  - CAUDA EQUINA SYNDROME [None]
  - CITROBACTER INFECTION [None]
  - CULTURE URINE POSITIVE [None]
  - DRUG TOXICITY [None]
  - THROMBOCYTOPENIA [None]
  - URINARY RETENTION [None]
